FAERS Safety Report 24240973 (Version 1)
Quarter: 2024Q3

REPORT INFORMATION
  Report Type: Spontaneous
  Country: TN (occurrence: TN)
  Receive Date: 20240823
  Receipt Date: 20240823
  Transmission Date: 20241017
  Serious: Yes (Other)
  Sender: ALKEM
  Company Number: TN-ALKEM LABORATORIES LIMITED-TN-ALKEM-2024-19013

PATIENT
  Age: 51 Year
  Sex: Male

DRUGS (1)
  1. AZATHIOPRINE [Suspect]
     Active Substance: AZATHIOPRINE
     Indication: Colitis ulcerative
     Dosage: 2.5 MILLIGRAM/KILOGRAM, QD
     Route: 042

REACTIONS (1)
  - Chronic myeloid leukaemia [Recovered/Resolved]
